FAERS Safety Report 9970117 (Version 1)
Quarter: 2014Q1

REPORT INFORMATION
  Report Type: Spontaneous
  Country: US (occurrence: None)
  Receive Date: 20140212
  Receipt Date: 20140212
  Transmission Date: 20141002
  Serious: Yes (Other)
  Sender: FDA-Public Use
  Company Number: 2013SCPR007674

PATIENT
  Age: 58 Year
  Sex: Female

DRUGS (1)
  1. BUPROPION HCI XL [Suspect]
     Indication: DEPRESSION
     Route: 048
     Dates: start: 20130802

REACTIONS (6)
  - Suicidal ideation [None]
  - Depression [None]
  - Disturbance in attention [None]
  - Restlessness [None]
  - Irritability [None]
  - Somnolence [None]
